FAERS Safety Report 12116856 (Version 1)
Quarter: 2016Q1

REPORT INFORMATION
  Report Type: Spontaneous
  Country: US (occurrence: US)
  Receive Date: 20160225
  Receipt Date: 20160225
  Transmission Date: 20160526
  Serious: No
  Sender: FDA-Public Use
  Company Number: US-GILEAD-2016-0200487

PATIENT
  Sex: Male
  Weight: 102 kg

DRUGS (3)
  1. SOVALDI [Suspect]
     Active Substance: SOFOSBUVIR
     Indication: PRODUCT USED FOR UNKNOWN INDICATION
     Route: 065
  2. RIBAVIRIN. [Suspect]
     Active Substance: RIBAVIRIN
     Indication: PRODUCT USED FOR UNKNOWN INDICATION
     Route: 065
  3. INTERFERON [Suspect]
     Active Substance: INTERFERON
     Indication: PRODUCT USED FOR UNKNOWN INDICATION
     Route: 065

REACTIONS (13)
  - Platelet count decreased [Unknown]
  - Nausea [Unknown]
  - Protein urine present [Unknown]
  - Anaemia [Unknown]
  - Drug dispensing error [Unknown]
  - Fatigue [Unknown]
  - Headache [Unknown]
  - Blood testosterone decreased [Unknown]
  - Blood urine present [Unknown]
  - Blood creatinine abnormal [Unknown]
  - Glomerular filtration rate decreased [Unknown]
  - Renal disorder [Unknown]
  - Asthenia [Unknown]
